FAERS Safety Report 6928969-1 (Version None)
Quarter: 2010Q3

REPORT INFORMATION
  Report Type: 
  Country: None (occurrence: None)
  Receive Date: 20100817
  Receipt Date: 20100804
  Transmission Date: 20110219
  Serious: Yes (Hospitalization)
  Sender: FDA-Public Use
  Company Number: GB-WATSON-2010-10915

PATIENT
  Age: 34 Year
  Sex: Female

DRUGS (2)
  1. OXYTROL [Suspect]
     Indication: PRODUCT USED FOR UNKNOWN INDICATION
     Dosage: 100 MG (20 - 5 MG TABLETS), SINGLE
     Route: 048
  2. ALCOHOL                            /00002101/ [Suspect]
     Indication: PRODUCT USED FOR UNKNOWN INDICATION
     Dosage: 3 UNITS

REACTIONS (17)
  - AGGRESSION [None]
  - AGITATION [None]
  - COMA [None]
  - CONFUSIONAL STATE [None]
  - DISORIENTATION [None]
  - DRY MOUTH [None]
  - DRY SKIN [None]
  - EXTRASYSTOLES [None]
  - HALLUCINATION [None]
  - HYPERTENSION [None]
  - OVERDOSE [None]
  - PUPIL FIXED [None]
  - SINUS TACHYCARDIA [None]
  - SOMNOLENCE [None]
  - URINARY RETENTION [None]
  - VENTRICULAR EXTRASYSTOLES [None]
  - VOMITING [None]
